FAERS Safety Report 12874541 (Version 1)
Quarter: 2016Q4

REPORT INFORMATION
  Report Type: Spontaneous
  Country: US (occurrence: US)
  Receive Date: 20161021
  Receipt Date: 20161021
  Transmission Date: 20170207
  Serious: No
  Sender: FDA-Public Use
  Company Number: US-PFIZER INC-2016492153

PATIENT
  Age: 53 Year
  Sex: Male

DRUGS (3)
  1. PRAVASTATIN. [Suspect]
     Active Substance: PRAVASTATIN
     Dosage: UNK
  2. VARENICLINE TARTRATE [Suspect]
     Active Substance: VARENICLINE TARTRATE
     Dosage: UNK
  3. PIOGLITAZONE HCL [Suspect]
     Active Substance: PIOGLITAZONE
     Dosage: UNK

REACTIONS (1)
  - Drug hypersensitivity [Unknown]
